FAERS Safety Report 12318169 (Version 2)
Quarter: 2016Q3

REPORT INFORMATION
  Report Type: Spontaneous
  Country: US (occurrence: US)
  Receive Date: 20160429
  Receipt Date: 20160701
  Transmission Date: 20161109
  Serious: Yes (Disabling, Other)
  Sender: FDA-Public Use
  Company Number: US-REGENERON PHARMACEUTICALS, INC.-2016-14239

PATIENT

DRUGS (2)
  1. EYLEA [Suspect]
     Active Substance: AFLIBERCEPT
     Indication: NEOVASCULAR AGE-RELATED MACULAR DEGENERATION
     Dosage: 1.0 MG MILLIGRAM(S), OS MONTHLY FOR 3 MONTHS THEN EVERY OTHER MONTH
     Route: 031
     Dates: start: 20141223, end: 20151030
  2. EYLEA [Suspect]
     Active Substance: AFLIBERCEPT
     Indication: NEOVASCULAR AGE-RELATED MACULAR DEGENERATION
     Dosage: 1.0 MG MILLIGRAM(S),EVERY 5 WEEKS X 3 MONTHS THEN EVERY 2 MONTHS
     Route: 031
     Dates: start: 20160304

REACTIONS (2)
  - Retinal pigment epithelial tear [Not Recovered/Not Resolved]
  - Blindness [Not Recovered/Not Resolved]

NARRATIVE: CASE EVENT DATE: 20160315
